FAERS Safety Report 8494420-6 (Version None)
Quarter: 2012Q2

REPORT INFORMATION
  Report Type: 
  Country: None (occurrence: None)
  Receive Date: 20120627
  Receipt Date: 20120612
  Transmission Date: 20120825
  Serious: Yes (Other)
  Sender: FDA-Public Use
  Company Number: JP-2012-15498

PATIENT
  Age: 93 Year
  Sex: Female

DRUGS (1)
  1. SAMSCA (TOLVAPTAN) TABLET, 15 MG [Suspect]
     Dosage: 7.5 MG, QD, ORAL
     Route: 048
     Dates: start: 20120124, end: 20120130

REACTIONS (1)
  - HYPERNATRAEMIA [None]
